FAERS Safety Report 10075417 (Version 1)
Quarter: 2014Q2

REPORT INFORMATION
  Report Type: Spontaneous
  Country: DE (occurrence: DE)
  Receive Date: 20140414
  Receipt Date: 20140414
  Transmission Date: 20141212
  Serious: Yes (Life-Threatening, Hospitalization, Congenital Anomaly, Other)
  Sender: FDA-Public Use
  Company Number: DE-DRREDDYS-GER/GER/14/0039438

PATIENT
  Age: 0 Day
  Sex: Male
  Weight: 3.1 kg

DRUGS (3)
  1. CITALOPRAM [Suspect]
     Indication: PRODUCT USED FOR UNKNOWN INDICATION
     Route: 064
  2. LEVOTHYROXINE SODIUM [Suspect]
     Indication: PRODUCT USED FOR UNKNOWN INDICATION
     Route: 064
  3. KEPPRA [Suspect]
     Indication: PRODUCT USED FOR UNKNOWN INDICATION
     Route: 064

REACTIONS (7)
  - Persistent foetal circulation [Recovered/Resolved]
  - Pulmonary artery stenosis congenital [Unknown]
  - Congenital mitral valve incompetence [Unknown]
  - Hypocalcaemia [Unknown]
  - Poor sucking reflex [Unknown]
  - Hydrocele [Unknown]
  - Foetal exposure during pregnancy [Unknown]
